FAERS Safety Report 5572153-3 (Version None)
Quarter: 2007Q4

REPORT INFORMATION
  Report Type: 
  Country: None (occurrence: None)
  Receive Date: 20071221
  Receipt Date: 20071213
  Transmission Date: 20080405
  Serious: Yes (Hospitalization)
  Sender: FDA-Public Use
  Company Number: GB-PFIZER INC-2007096793

PATIENT
  Sex: Male
  Weight: 63.8 kg

DRUGS (10)
  1. MARAVIROC [Suspect]
     Indication: HIV INFECTION
     Route: 048
     Dates: start: 20071024, end: 20071113
  2. TMC-114 [Suspect]
     Indication: HIV INFECTION
     Route: 048
     Dates: start: 20071024, end: 20071113
  3. ETRAVIRINE [Suspect]
     Indication: HIV INFECTION
     Route: 048
     Dates: start: 20071024, end: 20071113
  4. ALL OTHER THERAPEUTIC PRODUCTS [Concomitant]
     Route: 061
  5. TRUVADA [Concomitant]
     Route: 048
     Dates: start: 20051201, end: 20071013
  6. RITONAVIR [Concomitant]
     Route: 048
     Dates: start: 20071024, end: 20071113
  7. CLOBAZAM [Concomitant]
     Route: 048
  8. CLONAZEPAM [Concomitant]
     Route: 048
  9. NORTRIPTYLINE HCL [Concomitant]
     Route: 048
  10. BEECHAMS [Concomitant]
     Route: 048

REACTIONS (1)
  - DERMATITIS ALLERGIC [None]
